FAERS Safety Report 8247193-6 (Version None)
Quarter: 2012Q1

REPORT INFORMATION
  Report Type: 
  Country: None (occurrence: None)
  Receive Date: 20120330
  Receipt Date: 20120322
  Transmission Date: 20120608
  Serious: Yes (Hospitalization, Other)
  Sender: FDA-Public Use
  Company Number: US-BAYER-201038522NA

PATIENT
  Age: 36 Year
  Sex: Female
  Weight: 176.87 kg

DRUGS (5)
  1. VERAPAMIL [Concomitant]
     Indication: HEART RATE INCREASED
  2. SINGULAIR [Concomitant]
  3. YASMIN [Suspect]
     Indication: CONTRACEPTION
     Dosage: UNK UNK, UNK
     Route: 048
     Dates: start: 20020401, end: 20020601
  4. ADVAIR DISKUS 100/50 [Concomitant]
  5. RESCUE INHALER [Concomitant]

REACTIONS (4)
  - DYSPNOEA [None]
  - DEEP VEIN THROMBOSIS [None]
  - PULMONARY EMBOLISM [None]
  - HEART RATE INCREASED [None]
